FAERS Safety Report 8142819-X (Version None)
Quarter: 2012Q1

REPORT INFORMATION
  Report Type: 
  Country: None (occurrence: None)
  Receive Date: 20120216
  Receipt Date: 20120207
  Transmission Date: 20120608
  Serious: Yes (Hospitalization)
  Sender: FDA-Public Use
  Company Number: US-ASTRAZENECA-2012SE08536

PATIENT
  Age: 1 Year
  Sex: Male

DRUGS (1)
  1. PULMICORT [Suspect]
     Dosage: TWICE DAILY
     Route: 055

REACTIONS (3)
  - HYPERSENSITIVITY [None]
  - INFECTION [None]
  - ASTHMA [None]
